FAERS Safety Report 8847296 (Version 1)
Quarter: 2012Q4

REPORT INFORMATION
  Report Type: 
  Country: FR (occurrence: FR)
  Receive Date: 20121018
  Receipt Date: 20121018
  Transmission Date: 20130627
  Serious: Yes (Other)
  Sender: FDA-Public Use
  Company Number: FR-009507513-1210FRA008456

PATIENT
  Age: 69 Year

DRUGS (3)
  1. VELMETIA [Suspect]
     Indication: TYPE 2 DIABETES MELLITUS
     Dosage: 2 DF, qd
     Dates: start: 2012, end: 2012
  2. ZANIDIP [Concomitant]
     Indication: HYPERTENSION
     Dosage: 2 UNK, UNK
  3. COAPROVEL [Concomitant]
     Indication: HYPERTENSION
     Dosage: UNK

REACTIONS (1)
  - Hepatitis [Recovered/Resolved]
